FAERS Safety Report 6085721-X (Version None)
Quarter: 2009Q1

REPORT INFORMATION
  Report Type: 
  Country: None (occurrence: None)
  Receive Date: 20090220
  Receipt Date: 20090212
  Transmission Date: 20090719
  Serious: Yes (Other)
  Sender: FDA-Public Use
  Company Number: PHEH2009US01677

PATIENT
  Age: 60 Year

DRUGS (1)
  1. EXJADE [Suspect]

REACTIONS (2)
  - BALANCE DISORDER [None]
  - SPEECH DISORDER [None]
